FAERS Safety Report 6261640-0 (Version None)
Quarter: 2009Q3

REPORT INFORMATION
  Report Type: 
  Country: None (occurrence: None)
  Receive Date: 20090709
  Receipt Date: 20090707
  Transmission Date: 20100115
  Serious: Yes (Life-Threatening, Hospitalization)
  Sender: FDA-Public Use
  Company Number: US-EISAI INC.-E2080-00174-SPO-US

PATIENT
  Age: 49 Year
  Sex: Female
  Weight: 70 kg

DRUGS (4)
  1. BANZEL [Suspect]
     Indication: EPILEPSY
     Route: 048
     Dates: start: 20090409, end: 20090415
  2. BANZEL [Suspect]
     Route: 048
     Dates: start: 20090416, end: 20090609
  3. ZONISAMIDE [Concomitant]
  4. TOPAMAX [Concomitant]

REACTIONS (3)
  - CONVULSION [None]
  - LETHARGY [None]
  - LIVER FUNCTION TEST ABNORMAL [None]
